FAERS Safety Report 16643098 (Version 4)
Quarter: 2019Q3

REPORT INFORMATION
  Report Type: Report from Study
  Country: US (occurrence: US)
  Receive Date: 20190729
  Receipt Date: 20190812
  Transmission Date: 20191004
  Serious: No
  Sender: FDA-Public Use
  Company Number: PHEH2019US031103

PATIENT
  Sex: Male

DRUGS (1)
  1. ENTRESTO [Suspect]
     Active Substance: SACUBITRIL\VALSARTAN
     Indication: CARDIAC FAILURE
     Dosage: 100 MG (49 MG SACUBITRIL/51 MG VALSARTAN), BID
     Route: 048

REACTIONS (9)
  - Dyspnoea [Unknown]
  - Dysphonia [Unknown]
  - Fatigue [Unknown]
  - Blood potassium decreased [Unknown]
  - Cough [Unknown]
  - Speech disorder [Unknown]
  - Blood potassium increased [Unknown]
  - Malaise [Unknown]
  - Gait disturbance [Unknown]
